FAERS Safety Report 8040825-7 (Version None)
Quarter: 2012Q1

REPORT INFORMATION
  Report Type: 
  Country: None (occurrence: None)
  Receive Date: 20120112
  Receipt Date: 20120106
  Transmission Date: 20120608
  Serious: Yes (Hospitalization, Other)
  Sender: FDA-Public Use
  Company Number: DE-BRISTOL-MYERS SQUIBB COMPANY-15614175

PATIENT
  Age: 69 Year
  Sex: Male
  Weight: 60 kg

DRUGS (13)
  1. OXYCODONE HYDROCHLORIDE [Concomitant]
     Dates: start: 20110208
  2. PREDNISOLONE [Concomitant]
     Dates: start: 20110208
  3. CISPLATIN [Suspect]
     Indication: NON-SMALL CELL LUNG CANCER
     Dosage: PATIENT WITHDRAWN FROM STUDY ON 18MAR11.ON 25FEB-25FEB11:1D
     Route: 042
     Dates: start: 20110225, end: 20110318
  4. LYRICA [Concomitant]
     Dates: start: 20110208
  5. GEMZAR [Suspect]
     Indication: NON-SMALL CELL LUNG CANCER
     Dosage: LAST RECEIVED 04MAR2011(8 DAYS),PATIENT WITHDREW FROM STUDY ON 18MAR11
     Route: 042
     Dates: start: 20110225, end: 20110318
  6. FOLSAN [Concomitant]
     Dates: start: 20110208
  7. NALOXONE [Concomitant]
     Dates: start: 20110208
  8. BERODUAL [Concomitant]
     Dates: start: 19900101
  9. NOVALGIN [Concomitant]
     Dates: start: 20110208
  10. AMITRIPTYLINE HCL [Concomitant]
     Dates: start: 20110222
  11. SPIRIVA [Concomitant]
     Dates: start: 19900101
  12. PANTOPRAZOLE SODIUM [Concomitant]
     Dates: start: 20110208
  13. MOVIPREP [Concomitant]
     Dates: start: 20110218

REACTIONS (4)
  - DEHYDRATION [None]
  - THROMBOCYTOPENIA [None]
  - STOMATITIS [None]
  - NEUTROPENIA [None]
